FAERS Safety Report 14103157 (Version 1)
Quarter: 2017Q4

REPORT INFORMATION
  Report Type: Spontaneous
  Country: US (occurrence: US)
  Receive Date: 20171018
  Receipt Date: 20171018
  Transmission Date: 20180321
  Serious: No
  Sender: FDA-Public Use
  Company Number: US-BAUSCH-BL-2017-025610

PATIENT
  Sex: Male

DRUGS (2)
  1. WELLBUTRIN XL [Suspect]
     Active Substance: BUPROPION HYDROCHLORIDE
     Indication: PRODUCT USED FOR UNKNOWN INDICATION
     Route: 048
  2. WELLBUTRIN XL [Suspect]
     Active Substance: BUPROPION HYDROCHLORIDE
     Dosage: CUT THE TABLETS IN HALF AND TAKING HALF A TABLET OF THE WELLBUTRIN XL 150MG THREE TIMES DAILY
     Route: 048

REACTIONS (2)
  - Treatment noncompliance [Unknown]
  - Wrong technique in product usage process [Unknown]
